FAERS Safety Report 9301001 (Version 4)
Quarter: 2013Q3

REPORT INFORMATION
  Report Type: Spontaneous
  Country: US (occurrence: US)
  Receive Date: 20130521
  Receipt Date: 20130708
  Transmission Date: 20140515
  Serious: No
  Sender: FDA-Public Use
  Company Number: US-PFIZER INC-2013151315

PATIENT
  Age: 82 Year
  Sex: Female
  Weight: 70.3 kg

DRUGS (7)
  1. TIKOSYN [Suspect]
     Indication: ATRIAL FIBRILLATION
     Dosage: 500 UG, 2X/DAY
     Route: 048
     Dates: start: 2011
  2. TIKOSYN [Suspect]
     Dosage: 500 UG, UNK
  3. TIKOSYN [Suspect]
     Dosage: 0.5 MG, UNK
  4. WARFARIN [Concomitant]
     Dosage: UNK
  5. BABY ASPIRIN [Concomitant]
     Dosage: 81 MG, UNK
  6. VITAMIN D [Concomitant]
     Dosage: UNK
  7. ASPIRIN [Concomitant]
     Dosage: 81 MG, UNK

REACTIONS (9)
  - Blood glucose increased [Unknown]
  - Blood cholesterol increased [Unknown]
  - Vitamin D decreased [Unknown]
  - Blood urea increased [Unknown]
  - Poor quality drug administered [Unknown]
  - Drug ineffective [Unknown]
  - Feeling abnormal [Unknown]
  - Dizziness [Unknown]
  - Activities of daily living impaired [Unknown]
